FAERS Safety Report 12550266 (Version 1)
Quarter: 2016Q3

REPORT INFORMATION
  Report Type: Spontaneous
  Country: DK (occurrence: FR)
  Receive Date: 20160712
  Receipt Date: 20160712
  Transmission Date: 20161109
  Serious: Yes (Life-Threatening, Hospitalization)
  Sender: FDA-Public Use
  Company Number: FR-FRI-1000086042

PATIENT
  Age: 43 Year
  Sex: Female

DRUGS (5)
  1. ESCITALOPRAM [Suspect]
     Active Substance: ESCITALOPRAM OXALATE
     Indication: INTENTIONAL OVERDOSE
     Dosage: 14 TABLETS AT ONCE
     Route: 048
     Dates: start: 20160520, end: 20160520
  2. ESOMEPRAZOLE [Suspect]
     Active Substance: ESOMEPRAZOLE
     Indication: INTENTIONAL OVERDOSE
     Dosage: 4 TABLETS AT ONCE
     Route: 048
     Dates: start: 20160520, end: 20160520
  3. CORGARD [Suspect]
     Active Substance: NADOLOL
     Indication: INTENTIONAL OVERDOSE
     Dosage: 28 TABLETS AT ONCE
     Route: 048
     Dates: start: 20160520, end: 20160520
  4. LEVOTHYROX [Suspect]
     Active Substance: LEVOTHYROXINE
     Indication: INTENTIONAL OVERDOSE
     Dosage: 30 TABLETS AT ONCE
     Route: 048
     Dates: start: 20160520, end: 20160520
  5. ALPRAZOLAM. [Suspect]
     Active Substance: ALPRAZOLAM
     Indication: INTENTIONAL OVERDOSE
     Dosage: 30 TABLETS AT ONCE
     Route: 048
     Dates: start: 20160520, end: 20160520

REACTIONS (6)
  - Depressed level of consciousness [Recovered/Resolved]
  - Hypokalaemia [Recovered/Resolved]
  - Hypoglycaemia [Recovered/Resolved]
  - Miosis [Recovered/Resolved]
  - Intentional overdose [Recovered/Resolved]
  - Sinus bradycardia [Recovered/Resolved]

NARRATIVE: CASE EVENT DATE: 20160520
